FAERS Safety Report 4320837-7 (Version None)
Quarter: 2004Q1

REPORT INFORMATION
  Report Type: 
  Country: None (occurrence: None)
  Receive Date: 20040315
  Receipt Date: 20030630
  Transmission Date: 20041129
  Serious: Yes (Other)
  Sender: FDA-Public Use
  Company Number: PHEH2003US04005

PATIENT
  Age: 49 Year
  Sex: Male

DRUGS (1)
  1. TRILEPTAL [Suspect]
     Indication: MIGRAINE
     Dosage: 300 MG, BID, ORAL
     Route: 048
     Dates: start: 20021206, end: 20021212

REACTIONS (2)
  - RASH [None]
  - URTICARIA [None]
